FAERS Safety Report 4409109-X (Version None)
Quarter: 2004Q3

REPORT INFORMATION
  Report Type: 
  Country: None (occurrence: None)
  Receive Date: 20040727
  Receipt Date: 20040721
  Transmission Date: 20050211
  Serious: Yes (Hospitalization)
  Sender: FDA-Public Use
  Company Number: FR-MERCK-0407FRA00053

PATIENT
  Age: 73 Year
  Sex: Male

DRUGS (13)
  1. FOSAMAX [Suspect]
     Indication: OSTEOPOROSIS
     Route: 048
     Dates: start: 20040601
  2. ALFUZOSIN HYDROCHLORIDE [Concomitant]
     Indication: BENIGN PROSTATIC HYPERPLASIA
     Route: 048
  3. CALCIUM CARBONATE AND CHOLECALCIFEROL [Concomitant]
     Indication: OSTEOPOROSIS
     Route: 048
  4. CYCLOPHOSPHAMIDE [Suspect]
     Indication: POLYARTERITIS NODOSA
     Route: 051
     Dates: start: 20040601
  5. CYCLOPHOSPHAMIDE [Suspect]
     Route: 051
     Dates: start: 20040629, end: 20040629
  6. FLECAINIDE ACETATE [Concomitant]
     Indication: ARRHYTHMIA
     Route: 048
  7. LEVOTHYROXINE SODIUM [Concomitant]
     Indication: HYPOTHYROIDISM
     Route: 048
  8. MESNA [Suspect]
     Indication: PROPHYLAXIS
     Route: 051
     Dates: start: 20040601
  9. METHYLPREDNISOLONE SODIUM SUCCINATE [Concomitant]
     Route: 065
     Dates: start: 20040529, end: 20040531
  10. OMEPRAZOLE [Suspect]
     Route: 048
     Dates: start: 20040601
  11. POTASSIUM CHLORIDE [Concomitant]
     Route: 048
  12. PREDNISONE [Concomitant]
     Route: 048
  13. ZOPICLONE [Suspect]
     Route: 048

REACTIONS (4)
  - BALANCE DISORDER [None]
  - CONFUSIONAL STATE [None]
  - EXPRESSIVE LANGUAGE DISORDER [None]
  - HYPONATRAEMIA [None]
